FAERS Safety Report 21778844 (Version 1)
Quarter: 2022Q4

REPORT INFORMATION
  Report Type: Spontaneous
  Country: US (occurrence: US)
  Receive Date: 20221226
  Receipt Date: 20221226
  Transmission Date: 20230113
  Serious: Yes (Other)
  Sender: FDA-Public Use
  Company Number: US-BAYER-2022P031912

PATIENT
  Age: 49 Year
  Sex: Male

DRUGS (2)
  1. CLARITIN [Suspect]
     Active Substance: LORATADINE
     Dosage: 250 MG
  2. CLARITIN [Suspect]
     Active Substance: LORATADINE
     Dosage: 20 MG

REACTIONS (1)
  - Urticaria [None]
